FAERS Safety Report 6863963-0 (Version None)
Quarter: 2010Q3

REPORT INFORMATION
  Report Type: 
  Country: None (occurrence: None)
  Receive Date: 20100721
  Receipt Date: 20080521
  Transmission Date: 20110219
  Serious: Yes (Other)
  Sender: FDA-Public Use
  Company Number: US-PFIZER INC-2008022096

PATIENT
  Sex: Female
  Weight: 59 kg

DRUGS (1)
  1. CHANTIX [Suspect]
     Dates: start: 20071001

REACTIONS (8)
  - ABDOMINAL DISCOMFORT [None]
  - DEPRESSION [None]
  - HEADACHE [None]
  - IRRITABILITY [None]
  - MALAISE [None]
  - MOOD SWINGS [None]
  - NAUSEA [None]
  - SUICIDAL IDEATION [None]
